FAERS Safety Report 7818126-9 (Version None)
Quarter: 2011Q4

REPORT INFORMATION
  Report Type: 
  Country: None (occurrence: None)
  Receive Date: 20111017
  Receipt Date: 20111005
  Transmission Date: 20120403
  Serious: Yes (Hospitalization)
  Sender: FDA-Public Use
  Company Number: FR-ROCHE-1002536

PATIENT
  Age: 47 Year
  Sex: Female

DRUGS (7)
  1. VINCRISTINE [Suspect]
     Indication: T-CELL LYMPHOMA
     Route: 042
     Dates: start: 20101001, end: 20101129
  2. CYCLOPHOSPHAMIDE [Concomitant]
     Indication: T-CELL LYMPHOMA
     Route: 042
     Dates: start: 20101001
  3. DOXORUBICIN HCL [Concomitant]
     Indication: T-CELL LYMPHOMA
     Route: 042
     Dates: start: 20101001
  4. MABTHERA [Suspect]
     Route: 042
     Dates: start: 20101115
  5. MABTHERA [Suspect]
     Route: 042
     Dates: start: 20101129
  6. MABTHERA [Suspect]
     Indication: T-CELL LYMPHOMA
     Route: 042
     Dates: start: 20101028
  7. PREDNISONE [Concomitant]
     Indication: T-CELL LYMPHOMA
     Dosage: FROM DAY 1 TO DAY 5
     Route: 048
     Dates: start: 20101001

REACTIONS (2)
  - ACUTE POLYNEUROPATHY [None]
  - NEUROTOXICITY [None]
